FAERS Safety Report 6981720-1 (Version None)
Quarter: 2010Q3

REPORT INFORMATION
  Report Type: 
  Country: None (occurrence: None)
  Receive Date: 20100914
  Receipt Date: 20091026
  Transmission Date: 20110219
  Serious: No
  Sender: FDA-Public Use
  Company Number: US-PFIZER INC-2009268413

PATIENT
  Sex: Female
  Weight: 64.41 kg

DRUGS (3)
  1. LYRICA [Suspect]
     Indication: NEURALGIA
     Dosage: 75 MG, 1X/DAY
     Route: 048
     Dates: start: 20090908, end: 20090909
  2. LYRICA [Suspect]
     Indication: MIGRAINE
  3. LYRICA [Suspect]
     Indication: HEADACHE

REACTIONS (1)
  - SOMNOLENCE [None]
